FAERS Safety Report 6077747-7 (Version None)
Quarter: 2009Q1

REPORT INFORMATION
  Report Type: 
  Country: None (occurrence: None)
  Receive Date: 20090213
  Receipt Date: 20090203
  Transmission Date: 20090719
  Serious: Yes (Death)
  Sender: FDA-Public Use
  Company Number: JP-SANOFI-SYNTHELABO-A01200900470

PATIENT
  Sex: Male
  Weight: 52.6 kg

DRUGS (12)
  1. PYDOXAL [Concomitant]
     Indication: TUBERCULOSIS
     Route: 048
     Dates: start: 20080919, end: 20080919
  2. NEOISCOTIN [Concomitant]
     Indication: TUBERCULOSIS
     Route: 048
     Dates: start: 20080919, end: 20080919
  3. LENDORMIN D [Concomitant]
     Indication: INSOMNIA
     Route: 048
     Dates: end: 20080919
  4. MYSLEE [Concomitant]
     Indication: INSOMNIA
     Route: 048
     Dates: end: 20080919
  5. ZETIA [Concomitant]
     Indication: HYPERLIPIDAEMIA
     Route: 048
     Dates: end: 20080919
  6. SIGMART [Concomitant]
     Indication: ANGINA PECTORIS
     Route: 048
     Dates: start: 20080819, end: 20080919
  7. ANPLAG [Concomitant]
     Indication: PERIPHERAL CIRCULATORY FAILURE
     Route: 048
     Dates: end: 20080919
  8. BUFFERIN [Concomitant]
     Indication: ANGINA PECTORIS
     Route: 048
     Dates: end: 20080919
  9. CALTAN [Concomitant]
     Indication: HYPERPARATHYROIDISM SECONDARY
     Route: 048
     Dates: end: 20080919
  10. THYRADIN-S [Concomitant]
     Indication: HYPOTHYROIDISM
     Route: 048
     Dates: end: 20080920
  11. PLAVIX [Suspect]
     Indication: ANGINA PECTORIS
     Route: 048
     Dates: start: 20080819, end: 20080920
  12. PLAVIX [Suspect]
     Indication: ILIAC ARTERY STENOSIS
     Route: 048
     Dates: start: 20080819, end: 20080920

REACTIONS (1)
  - ACUTE HEPATIC FAILURE [None]
